FAERS Safety Report 6415982-6 (Version None)
Quarter: 2009Q4

REPORT INFORMATION
  Report Type: 
  Country: None (occurrence: None)
  Receive Date: 20091027
  Receipt Date: 20091019
  Transmission Date: 20100525
  Serious: Yes (Other)
  Sender: FDA-Public Use
  Company Number: B0600011A

PATIENT
  Age: 50 Year
  Sex: Female

DRUGS (1)
  1. ALLI [Suspect]
     Route: 048
     Dates: start: 20091001

REACTIONS (1)
  - FAECES PALE [None]
